FAERS Safety Report 8208489-7 (Version None)
Quarter: 2012Q1

REPORT INFORMATION
  Report Type: 
  Country: None (occurrence: None)
  Receive Date: 20120314
  Receipt Date: 20120228
  Transmission Date: 20120608
  Serious: No
  Sender: FDA-Public Use
  Company Number: US-B.I. PHARMACEUTICALS,INC./RIDGEFIELD-2012-BP-03803BP

PATIENT
  Sex: Male

DRUGS (8)
  1. OXYGEN [Concomitant]
     Indication: SLEEP APNOEA SYNDROME
  2. COUMADIN [Concomitant]
     Dosage: 7 MG
     Route: 048
  3. ADVAIR DISKUS 100/50 [Concomitant]
     Indication: ASTHMA
     Dosage: 2 PUF
     Route: 055
     Dates: start: 20020101
  4. ALBUTEROL [Concomitant]
     Indication: ASTHMA
     Route: 055
     Dates: start: 20020101
  5. VICODIN [Concomitant]
     Indication: BACK PAIN
     Route: 048
  6. SPIRIVA [Suspect]
     Indication: CHRONIC OBSTRUCTIVE PULMONARY DISEASE
     Dosage: 18 MCG
     Route: 055
     Dates: start: 20110101
  7. OXYGEN [Concomitant]
     Indication: CHRONIC OBSTRUCTIVE PULMONARY DISEASE
     Route: 055
     Dates: start: 20110101
  8. COUMADIN [Concomitant]
     Indication: THROMBOSIS
     Dosage: 10 MG
     Route: 048

REACTIONS (1)
  - DYSPNOEA [None]
